FAERS Safety Report 9432809 (Version 1)
Quarter: 2013Q3

REPORT INFORMATION
  Report Type: Spontaneous
  Country: DE (occurrence: DE)
  Receive Date: 20130729
  Receipt Date: 20130729
  Transmission Date: 20140515
  Serious: Yes (Other)
  Sender: FDA-Public Use
  Company Number: GER/GER/13/0032719

PATIENT
  Age: 34 Year
  Sex: Female
  Weight: 65 kg

DRUGS (6)
  1. RAMIPRIL (RAMIPRIL) [Suspect]
     Indication: HYPERTENSION
     Route: 048
  2. CLOPIDOGREL (CLOPIDOGREL) [Suspect]
     Indication: ISCHAEMIC HEART DISEASE PROPHYLAXIS
     Route: 048
  3. METOPROLOL (METOPROLOL) [Suspect]
     Indication: HYPERTENSION
     Route: 048
  4. PRAVASTATIN (PRAVASTATIN) [Suspect]
     Indication: HYPERCHOLESTEROLAEMIA
     Route: 048
  5. NEPRESOL [Suspect]
     Indication: HYPERTENSION
     Route: 048
  6. ACETYL SALICYLIC ACID [Suspect]
     Indication: ISCHAEMIC HEART DISEASE PROPHYLAXIS
     Route: 048

REACTIONS (2)
  - Caesarean section [None]
  - Exposure during pregnancy [None]
